FAERS Safety Report 7597037-0 (Version None)
Quarter: 2011Q3

REPORT INFORMATION
  Report Type: 
  Country: None (occurrence: None)
  Receive Date: 20110708
  Receipt Date: 20110701
  Transmission Date: 20111222
  Serious: Yes (Death, Hospitalization, Other)
  Sender: FDA-Public Use
  Company Number: JP-PFIZER INC-2011112194

PATIENT
  Age: 24 Year
  Sex: Female
  Weight: 62 kg

DRUGS (3)
  1. AMOXAPINE [Suspect]
     Dosage: 25 MG, 3X/DAY
     Route: 048
  2. SEPAZON [Suspect]
     Route: 048
  3. ZOLOFT [Suspect]
     Dosage: 50 MG, 1X/DAY
     Route: 048

REACTIONS (10)
  - VOMITING [None]
  - OVERDOSE [None]
  - COMPLETED SUICIDE [None]
  - HYPOXIC-ISCHAEMIC ENCEPHALOPATHY [None]
  - ALTERED STATE OF CONSCIOUSNESS [None]
  - CARDIAC ARREST [None]
  - RESPIRATORY ARREST [None]
  - DIABETES INSIPIDUS [None]
  - PNEUMONIA [None]
  - ASPHYXIA [None]
